FAERS Safety Report 5351319-1 (Version None)
Quarter: 2007Q2

REPORT INFORMATION
  Report Type: 
  Country: None (occurrence: None)
  Receive Date: 20070608
  Receipt Date: 20070605
  Transmission Date: 20071010
  Serious: Yes (Death)
  Sender: FDA-Public Use
  Company Number: FR-ROXANE LABORATORIES, INC-2007-BP-07629RO

PATIENT
  Age: 49 Year
  Sex: Male

DRUGS (1)
  1. DEXAMETHASONE 0.5MG TAB [Suspect]
     Indication: MENINGITIS PNEUMOCOCCAL

REACTIONS (2)
  - CONDITION AGGRAVATED [None]
  - VASCULITIS CEREBRAL [None]
